FAERS Safety Report 8734755 (Version 4)
Quarter: 2012Q4

REPORT INFORMATION
  Report Type: 
  Country: DE (occurrence: DE)
  Receive Date: 20120821
  Receipt Date: 20121207
  Transmission Date: 20130627
  Serious: Yes (Death, Hospitalization)
  Sender: FDA-Public Use
  Company Number: DE-GENZYME-201014494GPV

PATIENT
  Age: 71 Year
  Sex: Male
  Weight: 86 kg

DRUGS (12)
  1. MABCAMPATH [Suspect]
     Indication: T-CELL LYMPHOMA
     Dosage: 30 mg, day 4 and 5 of each cycle 1-3
     Route: 058
     Dates: start: 20091210, end: 20100115
  2. PREDNISONE [Suspect]
     Indication: T-CELL LYMPHOMA
     Dosage: 10 mg, qd (day 1-5)
     Route: 048
     Dates: start: 20091127, end: 20100110
  3. CYCLOPHOSPHAMIDE [Suspect]
     Indication: T-CELL LYMPHOMA
     Dosage: 1500 mg, qd (day 1)
     Route: 042
     Dates: start: 20091207, end: 20100111
  4. DOXORUBICIN [Suspect]
     Indication: T-CELL LYMPHOMA
     Dosage: 100 mg, qd (day 1)
     Route: 042
     Dates: start: 20091207, end: 20100111
  5. VINCRISTINE [Suspect]
     Indication: T-CELL LYMPHOMA
     Dosage: 1 mg, qd (day 1)
     Route: 042
     Dates: start: 20091126, end: 20100111
  6. FILGRASTIM [Suspect]
     Indication: T-CELL LYMPHOMA
     Dosage: 48 UNK, qd (day 1)
     Route: 058
     Dates: start: 20091225, end: 20100115
  7. TORASEMIDE [Concomitant]
     Indication: HYPERTENSION
     Dosage: 40 mg, qd
     Route: 048
     Dates: start: 20100204
  8. MARCUMAR [Concomitant]
     Indication: ATRIAL FIBRILLATION
     Dosage: UNK
     Route: 065
  9. METOPROLOL SUCCINATE [Concomitant]
     Indication: HYPERTENSION
     Dosage: 23.75 mg, qd
     Route: 048
     Dates: start: 20100202
  10. PANTOPRAZOLE [Concomitant]
     Indication: PROPHYLAXIS
     Dosage: 40 mg, qd
     Route: 048
     Dates: start: 20090927
  11. HEPARIN [Concomitant]
     Indication: ATRIAL FIBRILLATION
     Dosage: UNK
     Route: 065
  12. SULFAMETHOPRIM [Concomitant]
     Indication: PROPHYLAXIS
     Dosage: 160800 mg, 3x/w
     Route: 048
     Dates: start: 20091202

REACTIONS (7)
  - Pulmonary infarction [Recovered/Resolved]
  - Pulmonary embolism [Recovered/Resolved]
  - Pneumonia [Fatal]
  - Staphylococcal sepsis [Recovered/Resolved]
  - Cytomegalovirus infection [Recovered/Resolved]
  - Pneumonia [Recovered/Resolved]
  - Lymphoma [Fatal]
